FAERS Safety Report 16015652 (Version 1)
Quarter: 2019Q1

REPORT INFORMATION
  Report Type: Spontaneous
  Country: US (occurrence: US)
  Receive Date: 20190228
  Receipt Date: 20190228
  Transmission Date: 20190418
  Serious: No
  Sender: FDA-Public Use
  Company Number: US-009507513-1902USA009491

PATIENT
  Sex: Female
  Weight: 56.7 kg

DRUGS (1)
  1. MIRTAZAPINE. [Suspect]
     Active Substance: MIRTAZAPINE
     Indication: PRURITUS
     Dosage: 7.5 MILLIGRAM

REACTIONS (1)
  - Product use in unapproved indication [Unknown]
